FAERS Safety Report 15417565 (Version 2)
Quarter: 2018Q4

REPORT INFORMATION
  Report Type: Report from Study
  Country: None (occurrence: US)
  Receive Date: 20180924
  Receipt Date: 20181105
  Transmission Date: 20190204
  Serious: Yes (Other)
  Sender: FDA-Public Use
  Company Number: US-ABBVIE-16K-163-1823788-00

PATIENT
  Age: 62 Year
  Sex: Male

DRUGS (2)
  1. HUMIRA [Suspect]
     Active Substance: ADALIMUMAB
     Indication: RHEUMATOID ARTHRITIS
     Route: 058
  2. HUMIRA [Suspect]
     Active Substance: ADALIMUMAB
     Dosage: DOSE INCREASED
     Route: 058
     Dates: start: 201807

REACTIONS (31)
  - Incorrect dose administered [Unknown]
  - Product packaging quantity issue [Unknown]
  - Immunodeficiency [Recovering/Resolving]
  - Bone pain [Unknown]
  - Device issue [Unknown]
  - Pain in extremity [Recovering/Resolving]
  - Shoulder operation [Recovered/Resolved]
  - Product dispensing error [Unknown]
  - Hypertension [Unknown]
  - Paraesthesia [Unknown]
  - Sensitivity to weather change [Unknown]
  - Feeling cold [Unknown]
  - Tooth extraction [Unknown]
  - Onychomycosis [Unknown]
  - Adhesion [Unknown]
  - Musculoskeletal stiffness [Unknown]
  - Joint stiffness [Unknown]
  - Hypoaesthesia [Not Recovered/Not Resolved]
  - Muscle spasms [Not Recovered/Not Resolved]
  - Heart rate increased [Unknown]
  - Arthralgia [Recovering/Resolving]
  - Procedural pain [Recovered/Resolved]
  - Swelling [Unknown]
  - Arthralgia [Not Recovered/Not Resolved]
  - Rheumatoid arthritis [Recovering/Resolving]
  - Therapeutic response shortened [Unknown]
  - Pain in extremity [Recovered/Resolved]
  - Back pain [Unknown]
  - Benign neoplasm [Recovered/Resolved]
  - Cardiac ablation [Unknown]
  - Dizziness [Unknown]

NARRATIVE: CASE EVENT DATE: 2015
